FAERS Safety Report 7023446-4 (Version None)
Quarter: 2010Q3

REPORT INFORMATION
  Report Type: 
  Country: None (occurrence: None)
  Receive Date: 20100929
  Receipt Date: 20100922
  Transmission Date: 20110219
  Serious: Yes (Hospitalization, Other)
  Sender: FDA-Public Use
  Company Number: TRP_07219_2010

PATIENT
  Sex: Male

DRUGS (4)
  1. INFERGEN [Suspect]
     Indication: HEPATITIS C
     Dosage: 15 UG QD SUBCUTANEOUS
     Route: 058
     Dates: start: 20100101
  2. RIBAVIRIN [Suspect]
     Indication: HEPATITIS C
     Dosage: 600 MG BID ORAL
     Route: 048
     Dates: start: 20100101
  3. LEXEPRO [Concomitant]
  4. TRAZODONE HCL [Concomitant]

REACTIONS (4)
  - ANIMAL BITE [None]
  - CONDITION AGGRAVATED [None]
  - FATIGUE [None]
  - WOUND INFECTION [None]
